FAERS Safety Report 23315869 (Version 1)
Quarter: 2023Q4

REPORT INFORMATION
  Report Type: Report from Study
  Country: CN (occurrence: CN)
  Receive Date: 20231219
  Receipt Date: 20231219
  Transmission Date: 20240110
  Serious: No
  Sender: FDA-Public Use
  Company Number: CN-PFIZER INC-PV202300203876

PATIENT
  Age: 87 Year
  Sex: Male

DRUGS (4)
  1. NIRMATRELVIR\RITONAVIR [Suspect]
     Active Substance: NIRMATRELVIR\RITONAVIR
     Indication: COVID-19
     Dosage: [NIRMATRELVIR 300MG]/[RITONAVIR 100MG], 2X/DAY, PC
     Dates: start: 20220502, end: 20220507
  2. NIRMATRELVIR\RITONAVIR [Suspect]
     Active Substance: NIRMATRELVIR\RITONAVIR
     Dosage: [NIRMATRELVIR 300MG]/[RITONAVIR 100MG], 2X/DAY, PC
     Dates: start: 20220509, end: 20220509
  3. NIRMATRELVIR\RITONAVIR [Suspect]
     Active Substance: NIRMATRELVIR\RITONAVIR
     Dosage: [NIRMATRELVIR 150MG]/[RITONAVIR 100MG], 2X/DAY, PC
     Dates: start: 20220510, end: 20220514
  4. NIRMATRELVIR\RITONAVIR [Suspect]
     Active Substance: NIRMATRELVIR\RITONAVIR
     Dosage: [NIRMATRELVIR 150MG]/[RITONAVIR 100MG], 2X/DAY, PC
     Dates: start: 20220523, end: 20220526

REACTIONS (1)
  - Overdose [Unknown]
